FAERS Safety Report 9895229 (Version 1)
Quarter: 2014Q1

REPORT INFORMATION
  Report Type: Spontaneous
  Country: US (occurrence: US)
  Receive Date: 20140213
  Receipt Date: 20140213
  Transmission Date: 20141002
  Serious: Yes (Other)
  Sender: FDA-Public Use
  Company Number: US-BRISTOL-MYERS SQUIBB COMPANY-19367580

PATIENT
  Age: 75 Year
  Sex: Female
  Weight: 71.65 kg

DRUGS (2)
  1. ORENCIA [Suspect]
     Indication: RHEUMATOID ARTHRITIS
     Dosage: DRUG STOPPED IN MAR2013 OR APR2013.
     Route: 042
  2. WARFARIN SODIUM [Concomitant]
     Indication: THROMBOSIS

REACTIONS (1)
  - Salivary gland neoplasm [Unknown]
